FAERS Safety Report 8102566-7 (Version None)
Quarter: 2012Q1

REPORT INFORMATION
  Report Type: 
  Country: None (occurrence: None)
  Receive Date: 20120201
  Receipt Date: 20120117
  Transmission Date: 20120608
  Serious: Yes (Other)
  Sender: FDA-Public Use
  Company Number: CA-JNJFOC-20120112976

PATIENT
  Sex: Male
  Weight: 91 kg

DRUGS (4)
  1. REMICADE [Suspect]
     Indication: COLITIS ULCERATIVE
     Route: 042
     Dates: start: 20111013
  2. H2-RECEPTOR ANTAGONISTS [Concomitant]
     Indication: GASTROOESOPHAGEAL REFLUX DISEASE
     Route: 065
  3. REMICADE [Suspect]
     Route: 042
     Dates: start: 20111026
  4. PENTASA [Concomitant]
     Route: 065

REACTIONS (4)
  - NASOPHARYNGITIS [None]
  - CATHETER SITE PAIN [None]
  - MUSCULOSKELETAL STIFFNESS [None]
  - CATHETER SITE RELATED REACTION [None]
